FAERS Safety Report 6700350-X (Version None)
Quarter: 2010Q2

REPORT INFORMATION
  Report Type: 
  Country: None (occurrence: None)
  Receive Date: 20100428
  Receipt Date: 20100411
  Transmission Date: 20101027
  Serious: No
  Sender: FDA-Public Use
  Company Number: US-B.I. PHARMACEUTICALS,INC./RIDGEFIELD-2010-BP-04207BP

PATIENT
  Age: 26 Year

DRUGS (1)
  1. ZANTAC 75 [Suspect]
     Indication: CHEST PAIN
     Dosage: 75 MG
     Route: 048
     Dates: start: 20100411

REACTIONS (1)
  - CHEST PAIN [None]
